FAERS Safety Report 7936081-8 (Version None)
Quarter: 2011Q4

REPORT INFORMATION
  Report Type: 
  Country: None (occurrence: None)
  Receive Date: 20111123
  Receipt Date: 20111121
  Transmission Date: 20120403
  Serious: Yes (Death)
  Sender: FDA-Public Use
  Company Number: US-SHIRE-ALL1-2011-04600

PATIENT
  Sex: Male

DRUGS (1)
  1. FOSRENOL [Suspect]
     Indication: HYPERPHOSPHATAEMIA
     Dosage: 2000 MG, 3X/DAY:TID (TWO 1000 MG TABLETS THREE TIMES DAILY)
     Route: 048

REACTIONS (2)
  - MALAISE [None]
  - DEATH [None]
